FAERS Safety Report 6423299-9 (Version None)
Quarter: 2009Q4

REPORT INFORMATION
  Report Type: 
  Country: None (occurrence: None)
  Receive Date: 20091102
  Receipt Date: 20091023
  Transmission Date: 20100525
  Serious: Yes (Other)
  Sender: FDA-Public Use
  Company Number: US-KINGPHARMUSA00001-K200901350

PATIENT
  Age: 55 Year
  Sex: Male
  Weight: 102.49 kg

DRUGS (11)
  1. SKELAXIN [Suspect]
     Indication: NECK PAIN
     Dosage: UNK, UNK
     Dates: start: 20090901, end: 20091001
  2. FEBUXOSTAT [Suspect]
     Indication: GOUT
     Dosage: 40 MG, QD
     Route: 048
     Dates: start: 20090901, end: 20091001
  3. ACIPHEX [Concomitant]
     Indication: GASTROOESOPHAGEAL REFLUX DISEASE
     Dosage: UNK
  4. ALLOPURINOL [Concomitant]
     Indication: GOUT
     Dosage: UNK
  5. BENICAR HCT [Concomitant]
     Indication: HYPERTENSION
     Dosage: UNK
  6. CELEBREX [Concomitant]
     Indication: BONE PAIN
     Dosage: UNK
  7. CLONIDINE [Concomitant]
     Indication: HYPERTENSION
     Dosage: UNK
  8. COLCHICINE [Concomitant]
     Indication: GOUT
     Dosage: UNK
  9. NORVASC [Concomitant]
     Indication: HYPERTENSION
     Dosage: UNK
  10. AMBIEN [Concomitant]
     Indication: INSOMNIA
     Dosage: UNK
  11. TOPROL-XL [Concomitant]
     Indication: HYPERTENSION
     Dosage: UNK

REACTIONS (3)
  - AGGRESSION [None]
  - CONFUSIONAL STATE [None]
  - PSYCHOTIC BEHAVIOUR [None]
